FAERS Safety Report 21641406 (Version 1)
Quarter: 2022Q4

REPORT INFORMATION
  Report Type: Report from Study
  Country: US (occurrence: US)
  Receive Date: 20221125
  Receipt Date: 20221125
  Transmission Date: 20230113
  Serious: No
  Sender: FDA-Public Use
  Company Number: US-ABBVIE-4178365

PATIENT
  Sex: Female

DRUGS (4)
  1. SKYRIZI [Suspect]
     Active Substance: RISANKIZUMAB-RZAA
     Indication: Psoriasis
     Route: 058
     Dates: start: 20220119
  2. MOMETASONE CRE 0.1%; [Concomitant]
     Indication: Product used for unknown indication
  3. TRIAMCINOLON CRE 0.1% [Concomitant]
     Indication: Product used for unknown indication
  4. CLOBETASOL SOL 0.05%; [Concomitant]
     Indication: Product used for unknown indication

REACTIONS (1)
  - Psoriasis [Not Recovered/Not Resolved]
